FAERS Safety Report 6860948-5 (Version None)
Quarter: 2010Q3

REPORT INFORMATION
  Report Type: 
  Country: None (occurrence: None)
  Receive Date: 20100715
  Receipt Date: 20100713
  Transmission Date: 20110219
  Serious: Yes (Other)
  Sender: FDA-Public Use
  Company Number: GRT 2010-13969

PATIENT
  Age: 63 Year
  Sex: Female
  Weight: 88 kg

DRUGS (11)
  1. LIDOCAINE HCL [Suspect]
     Indication: POST HERPETIC NEURALGIA
     Dates: start: 20100525, end: 20100526
  2. SYMBICORT [Suspect]
     Indication: ASTHMA
     Dosage: TWICE A DAY
     Dates: start: 20100517, end: 20100526
  3. ACYCLOVIR [Concomitant]
  4. CALCIUM CARBONATE/COLECALCIFEROL [Concomitant]
  5. AMITRIPTYLINE HYDROCHLORIDE [Concomitant]
  6. ANASTROZOLE [Concomitant]
  7. FULTICASONE PROPIONATE [Concomitant]
  8. TERAZOSIN HYDROCHLORIDE [Concomitant]
  9. IBANDRONIC ACID [Concomitant]
  10. PREDONISOLONE [Concomitant]
  11. SALBUTAMOL [Concomitant]

REACTIONS (5)
  - HEART RATE INCREASED [None]
  - HYPERTENSION [None]
  - HYPERVIGILANCE [None]
  - MALAISE [None]
  - TACHYCARDIA [None]
